FAERS Safety Report 10231044 (Version 2)
Quarter: 2014Q2

REPORT INFORMATION
  Report Type: Report from Study
  Country: US (occurrence: US)
  Receive Date: 20140611
  Receipt Date: 20140611
  Transmission Date: 20141212
  Serious: Yes (Other)
  Sender: FDA-Public Use
  Company Number: US-SANOFI-AVENTIS-2013SA059607

PATIENT
  Age: 64 Year
  Sex: Male
  Weight: 102 kg

DRUGS (8)
  1. AUBAGIO [Suspect]
     Indication: MULTIPLE SCLEROSIS
     Route: 048
     Dates: start: 20130525, end: 20140219
  2. AUBAGIO [Suspect]
     Indication: MULTIPLE SCLEROSIS
     Route: 048
     Dates: start: 20130525, end: 20140219
  3. AUBAGIO [Suspect]
     Indication: MULTIPLE SCLEROSIS
     Route: 048
  4. LISINOPRIL [Concomitant]
     Indication: BLOOD PRESSURE
     Route: 065
  5. OXYBUTYNIN [Concomitant]
     Indication: PROSTATIC DISORDER
  6. TAMSULOSIN [Concomitant]
     Indication: PROSTATIC DISORDER
  7. FINASTERIDE [Concomitant]
     Indication: BLADDER DISORDER
  8. TIZANIDINE [Concomitant]
     Indication: MUSCLE SPASTICITY

REACTIONS (10)
  - Sciatica [Unknown]
  - Sciatica [Unknown]
  - Asthenia [Unknown]
  - Fall [Unknown]
  - Flushing [Recovered/Resolved]
  - Impaired healing [Recovered/Resolved]
  - Oral herpes [Recovered/Resolved]
  - Fatigue [Recovered/Resolved]
  - Alanine aminotransferase increased [Unknown]
  - Drug dose omission [Unknown]
